FAERS Safety Report 19949121 (Version 1)
Quarter: 2021Q4

REPORT INFORMATION
  Report Type: Spontaneous
  Country: US (occurrence: US)
  Receive Date: 20211012
  Receipt Date: 20211012
  Transmission Date: 20220303
  Serious: Yes (Other)
  Sender: FDA-Public Use
  Company Number: None

PATIENT
  Age: 75 Year
  Sex: Female
  Weight: 80.91 kg

DRUGS (9)
  1. CAPECITABINE [Suspect]
     Active Substance: CAPECITABINE
     Indication: Colon cancer
     Route: 048
     Dates: start: 20210817
  2. ARICEPT [Concomitant]
     Active Substance: DONEPEZIL HYDROCHLORIDE
  3. RAMIPRIL [Concomitant]
     Active Substance: RAMIPRIL
  4. COREG [Concomitant]
     Active Substance: CARVEDILOL
  5. ASPIRIN [Concomitant]
     Active Substance: ASPIRIN
  6. CRESTOR [Concomitant]
     Active Substance: ROSUVASTATIN CALCIUM
  7. MELOXICAM [Concomitant]
     Active Substance: MELOXICAM
  8. ZOFRAN [Concomitant]
     Active Substance: ONDANSETRON HYDROCHLORIDE
  9. VITAMINS [Concomitant]
     Active Substance: VITAMINS

REACTIONS (3)
  - Blister [None]
  - Pain in extremity [None]
  - Rash [None]

NARRATIVE: CASE EVENT DATE: 20211012
